FAERS Safety Report 8156527-2 (Version None)
Quarter: 2012Q1

REPORT INFORMATION
  Report Type: 
  Country: None (occurrence: None)
  Receive Date: 20120221
  Receipt Date: 20120221
  Transmission Date: 20120608
  Serious: Yes (Hospitalization)
  Sender: FDA-Public Use
  Company Number: None

PATIENT
  Age: 65 Year
  Sex: Male
  Weight: 88.1 kg

DRUGS (1)
  1. HYDROCHLOROTHIAZIDE [Suspect]
     Indication: HYPERTENSION
     Dates: start: 20090429, end: 20110723

REACTIONS (3)
  - CONVULSION [None]
  - CAROTID ARTERIOSCLEROSIS [None]
  - INAPPROPRIATE ANTIDIURETIC HORMONE SECRETION [None]
